FAERS Safety Report 4790794-8 (Version None)
Quarter: 2005Q3

REPORT INFORMATION
  Report Type: 
  Country: None (occurrence: None)
  Receive Date: 20050914
  Receipt Date: 20040809
  Transmission Date: 20060218
  Serious: Yes (Death)
  Sender: FDA-Public Use
  Company Number: 062-20785-04080312

PATIENT
  Age: 68 Year
  Sex: Male

DRUGS (1)
  1. THALIDOMIDE PHARMION (THALIDOMIDE) (CAPSULES) [Suspect]
     Indication: MULTIPLE MYELOMA
     Dosage: 200 MG, DAILY, ORAL
     Route: 048
     Dates: start: 20030723, end: 20030730

REACTIONS (4)
  - ANAEMIA [None]
  - DEATH [None]
  - DISEASE PROGRESSION [None]
  - THROMBOCYTOPENIA [None]
